FAERS Safety Report 7519328-1 (Version None)
Quarter: 2011Q2

REPORT INFORMATION
  Report Type: 
  Country: None (occurrence: None)
  Receive Date: 20110602
  Receipt Date: 20110524
  Transmission Date: 20111010
  Serious: Yes (Other)
  Sender: FDA-Public Use
  Company Number: FR-ASTRAZENECA-2011SE33019

PATIENT
  Age: 24368 Day
  Sex: Female

DRUGS (3)
  1. ASPIRIN [Concomitant]
  2. ARIMIDEX [Suspect]
     Indication: BREAST CANCER
     Route: 048
     Dates: start: 20080101, end: 20110401
  3. ARIMIDEX [Suspect]
     Route: 048
     Dates: start: 20110501

REACTIONS (1)
  - RETINAL ARTERY THROMBOSIS [None]
